FAERS Safety Report 24066647 (Version 2)
Quarter: 2024Q3

REPORT INFORMATION
  Report Type: Report from Study
  Country: US (occurrence: US)
  Receive Date: 20240709
  Receipt Date: 20240718
  Transmission Date: 20241016
  Serious: Yes (Other)
  Sender: ROCHE
  Company Number: US-ROCHE-10000012661

PATIENT
  Age: 51 Year
  Sex: Female

DRUGS (8)
  1. OCREVUS [Suspect]
     Active Substance: OCRELIZUMAB
     Indication: Relapsing-remitting multiple sclerosis
     Dosage: INFUSE AT 0, 2WEEKS THEN 600 MG EVERY 6 MONTHS
     Route: 042
     Dates: start: 2019
  2. MIRALAX [Concomitant]
     Active Substance: POLYETHYLENE GLYCOL 3350
  3. LISINOPRIL [Concomitant]
     Active Substance: LISINOPRIL
  4. DIAZEPAM [Concomitant]
     Active Substance: DIAZEPAM
  5. OXYBUTYNIN [Concomitant]
     Active Substance: OXYBUTYNIN\OXYBUTYNIN CHLORIDE
  6. METHYLPREDNISOLONE [Concomitant]
     Active Substance: METHYLPREDNISOLONE
  7. DIPHENHYDRAMINE [Concomitant]
     Active Substance: DIPHENHYDRAMINE
  8. TYLENOL [Concomitant]
     Active Substance: ACETAMINOPHEN

REACTIONS (74)
  - Urinary incontinence [Unknown]
  - Asthenia [Unknown]
  - Hypoaesthesia [Unknown]
  - Ataxia [Unknown]
  - Constipation [Unknown]
  - Bladder disorder [Unknown]
  - Overweight [Unknown]
  - Urinary incontinence [Unknown]
  - Nocturia [Unknown]
  - Pyrexia [Unknown]
  - Chills [Unknown]
  - Diplopia [Unknown]
  - Eye pain [Unknown]
  - Eye injury [Unknown]
  - Otorrhoea [Unknown]
  - Epistaxis [Unknown]
  - Nasal congestion [Unknown]
  - Anosmia [Unknown]
  - Ageusia [Unknown]
  - Gingival bleeding [Unknown]
  - Dysphonia [Unknown]
  - Dysphagia [Unknown]
  - Toothache [Unknown]
  - Snoring [Unknown]
  - Palpitations [Unknown]
  - Peripheral swelling [Unknown]
  - Dyspnoea [Unknown]
  - Syncope [Unknown]
  - Asthma [Unknown]
  - Wheezing [Unknown]
  - Haemoptysis [Unknown]
  - Peripheral coldness [Unknown]
  - Productive cough [Unknown]
  - Abdominal pain [Unknown]
  - Dyspepsia [Unknown]
  - Abdominal distension [Unknown]
  - Vomiting [Unknown]
  - Haematochezia [Unknown]
  - Hepatitis [Unknown]
  - Blood urine present [Unknown]
  - Nephropathy [Unknown]
  - Joint swelling [Unknown]
  - Joint deformity [Unknown]
  - Joint instability [Unknown]
  - Rash [Unknown]
  - Pruritus [Unknown]
  - Skin discolouration [Unknown]
  - Breast pain [Unknown]
  - Breast mass [Unknown]
  - Headache [Unknown]
  - Facial pain [Unknown]
  - Dizziness [Unknown]
  - Vertigo [Unknown]
  - Hypoaesthesia [Unknown]
  - Tremor [Unknown]
  - Confusional state [Unknown]
  - Speech disorder [Unknown]
  - Taste disorder [Unknown]
  - Tic [Unknown]
  - Dyskinesia [Unknown]
  - Hallucination [Unknown]
  - Thyroid disorder [Unknown]
  - Thirst [Unknown]
  - Polyuria [Unknown]
  - Temperature intolerance [Unknown]
  - Hair growth abnormal [Unknown]
  - Haemorrhagic diathesis [Unknown]
  - Lymph node pain [Unknown]
  - Phlebitis [Unknown]
  - Anaemia [Unknown]
  - Infection [Unknown]
  - Neoplasm malignant [Unknown]
  - Major depression [Unknown]
  - Fall [Unknown]
